FAERS Safety Report 13141074 (Version 1)
Quarter: 2017Q1

REPORT INFORMATION
  Report Type: Spontaneous
  Country: US (occurrence: US)
  Receive Date: 20170120
  Receipt Date: 20170120
  Transmission Date: 20170428
  Serious: Yes (Other)
  Sender: FDA-Public Use
  Company Number: None

PATIENT
  Age: 69 Year
  Sex: Male
  Weight: 126 kg

DRUGS (5)
  1. XIIDRA [Suspect]
     Active Substance: LIFITEGRAST
     Indication: DRY EYE
     Route: 047
     Dates: start: 20161010, end: 20170120
  2. CARVEDILOL. [Concomitant]
     Active Substance: CARVEDILOL
  3. TORSEMIDE. [Concomitant]
     Active Substance: TORSEMIDE
  4. ATORVASTATIN [Concomitant]
     Active Substance: ATORVASTATIN
  5. LOSARTAN. [Concomitant]
     Active Substance: LOSARTAN

REACTIONS (3)
  - Eyelid margin crusting [None]
  - Lacrimation increased [None]
  - Visual impairment [None]

NARRATIVE: CASE EVENT DATE: 20170102
